FAERS Safety Report 7399392-3 (Version None)
Quarter: 2011Q2

REPORT INFORMATION
  Report Type: 
  Country: None (occurrence: None)
  Receive Date: 20110407
  Receipt Date: 20110323
  Transmission Date: 20111010
  Serious: Yes (Other)
  Sender: FDA-Public Use
  Company Number: PHHY2009CA35869

PATIENT
  Sex: Female

DRUGS (11)
  1. ELTROXIN [Concomitant]
  2. LORAZEPAM [Concomitant]
  3. SANDOSTATIN LAR [Suspect]
     Dosage: 20 MG, EVERY 4 WEEKS
     Route: 030
     Dates: start: 20050705
  4. REACTINE [Concomitant]
  5. SANDOSTATIN LAR [Suspect]
     Indication: ACROMEGALY
     Dosage: 20 MG EVERY 6 WEEKS
     Route: 030
  6. EFFEXOR [Concomitant]
  7. NEXIUM [Concomitant]
  8. CLONAZEPAM [Concomitant]
  9. ALERTEC [Concomitant]
  10. SYMBICORT [Concomitant]
  11. SANDOSTATIN LAR [Suspect]
     Dosage: 20 MG EVERY 4 WEEKS
     Route: 030
     Dates: start: 20090303

REACTIONS (23)
  - GLUCOSE TOLERANCE IMPAIRED [None]
  - NASAL CONGESTION [None]
  - PAIN IN EXTREMITY [None]
  - RASH [None]
  - FATIGUE [None]
  - BLOOD PRESSURE INCREASED [None]
  - OEDEMA PERIPHERAL [None]
  - CONFUSIONAL STATE [None]
  - SLUGGISHNESS [None]
  - VULVOVAGINAL MYCOTIC INFECTION [None]
  - HEADACHE [None]
  - SWELLING FACE [None]
  - NAUSEA [None]
  - SPEECH DISORDER [None]
  - DIARRHOEA [None]
  - EYELID DISORDER [None]
  - MALAISE [None]
  - SWELLING [None]
  - FLUSHING [None]
  - MOUTH ULCERATION [None]
  - PRURITUS [None]
  - STRESS [None]
  - ANGER [None]
